FAERS Safety Report 20516454 (Version 1)
Quarter: 2022Q1

REPORT INFORMATION
  Report Type: Report from Study
  Country: BE (occurrence: BE)
  Receive Date: 20220225
  Receipt Date: 20220225
  Transmission Date: 20220423
  Serious: Yes (Hospitalization)
  Sender: FDA-Public Use
  Company Number: BE-RECORDATI RARE DISEASE INC.-2021002695

PATIENT

DRUGS (1)
  1. PASIREOTIDE [Suspect]
     Active Substance: PASIREOTIDE
     Indication: Product used for unknown indication
     Dosage: 60 MILLIGRAM ONCE EVERY 4 WEEKS
     Route: 030
     Dates: start: 20141218

REACTIONS (3)
  - COVID-19 [Recovered/Resolved]
  - Asthenia [Recovered/Resolved]
  - Weight decreased [Recovered/Resolved]

NARRATIVE: CASE EVENT DATE: 20210523
